FAERS Safety Report 7535580-0 (Version None)
Quarter: 2011Q2

REPORT INFORMATION
  Report Type: 
  Country: None (occurrence: None)
  Receive Date: 20110609
  Receipt Date: 20110526
  Transmission Date: 20111010
  Serious: Yes (Hospitalization)
  Sender: FDA-Public Use
  Company Number: US-BAYER-201037601NA

PATIENT
  Sex: Female
  Weight: 113.38 kg

DRUGS (10)
  1. YASMIN [Suspect]
     Indication: ACNE
     Dosage: UNK
     Dates: start: 20040101, end: 20100101
  2. CIPROFLOXACIN HCL [Concomitant]
     Route: 048
  3. NAPROXEN (ALEVE) [Concomitant]
  4. MOTRIN [Concomitant]
  5. LEVSIN [Concomitant]
     Route: 048
  6. BACTRIM [Concomitant]
  7. DROSPIRENONE AND ETHINYL ESTRADIOL [Suspect]
     Indication: ACNE
     Dosage: UNK
     Dates: start: 20040101, end: 20100101
  8. NAPROXEN [Concomitant]
  9. YAZ [Suspect]
     Indication: ACNE
     Dosage: UNK
     Dates: start: 20040101, end: 20100101
  10. MACRODANTIN [Concomitant]

REACTIONS (10)
  - GALLBLADDER DISORDER [None]
  - NEPHROLITHIASIS [None]
  - DIARRHOEA [None]
  - HEPATIC STEATOSIS [None]
  - CHOLECYSTITIS ACUTE [None]
  - CHOLELITHIASIS [None]
  - VOMITING [None]
  - NAUSEA [None]
  - PAIN [None]
  - ABDOMINAL PAIN [None]
